FAERS Safety Report 9267350 (Version 2)
Quarter: 2013Q2

REPORT INFORMATION
  Report Type: Spontaneous
  Country: FR (occurrence: FR)
  Receive Date: 20130502
  Receipt Date: 20130514
  Transmission Date: 20140414
  Serious: Yes (Hospitalization)
  Sender: FDA-Public Use
  Company Number: FR-PFIZER INC-2013130718

PATIENT
  Age: 42 Year
  Sex: Female

DRUGS (1)
  1. TRINORDIOL [Suspect]
     Indication: ORAL CONTRACEPTION
     Dosage: 1 DF (50-75-125UG/ 30-40-30UG), 1X/DAY
     Route: 048
     Dates: start: 201302, end: 20130409

REACTIONS (3)
  - Visual impairment [Recovered/Resolved]
  - Nausea [Recovered/Resolved]
  - Vomiting [Recovered/Resolved]
